FAERS Safety Report 23341816 (Version 1)
Quarter: 2023Q4

REPORT INFORMATION
  Report Type: Spontaneous
  Country: GB (occurrence: GB)
  Receive Date: 20231227
  Receipt Date: 20231227
  Transmission Date: 20240110
  Serious: Yes (Other)
  Sender: FDA-Public Use
  Company Number: None

PATIENT
  Age: 59 Year
  Sex: Male
  Weight: 132 kg

DRUGS (17)
  1. AMOXICILLIN\CLAVULANATE POTASSIUM [Suspect]
     Active Substance: AMOXICILLIN\CLAVULANATE POTASSIUM
     Indication: Ill-defined disorder
     Dosage: UNK
     Route: 065
     Dates: start: 20231206
  2. ATORVASTATIN [Concomitant]
     Active Substance: ATORVASTATIN
     Indication: Ill-defined disorder
     Dosage: 1 DF (1 TABLET)
     Route: 065
     Dates: start: 20231018
  3. COCODAMOL [Concomitant]
     Active Substance: ACETAMINOPHEN\CODEINE PHOSPHATE
     Indication: Ill-defined disorder
     Dosage: 2 DF (2 TABLET)
     Route: 065
     Dates: start: 20231101
  4. AMOXICILLIN\CLAVULANATE POTASSIUM [Concomitant]
     Active Substance: AMOXICILLIN\CLAVULANATE POTASSIUM
     Indication: Ill-defined disorder
     Dosage: 1 DF (1 TABLET)
     Route: 065
     Dates: start: 20231129, end: 20231206
  5. Dapagliflozin Zydus [Concomitant]
     Indication: Ill-defined disorder
     Dosage: 1 DF (1 TABLET)
     Route: 065
     Dates: start: 20231018
  6. DOXYCYCLINE [Concomitant]
     Active Substance: DOXYCYCLINE
     Indication: Ill-defined disorder
     Dosage: UNK (1-2 CAPSULE)
     Route: 065
     Dates: start: 20231108, end: 20231115
  7. EDOXABAN [Concomitant]
     Active Substance: EDOXABAN
     Indication: Ill-defined disorder
     Dosage: 1 DF (1 TABLET)
     Route: 065
     Dates: start: 20231018
  8. BECLOMETHASONE\FORMOTEROL [Concomitant]
     Active Substance: BECLOMETHASONE\FORMOTEROL
     Indication: Ill-defined disorder
     Dosage: UNK 1 ACTUATION
     Route: 065
     Dates: start: 20230823
  9. FUROSEMIDE [Concomitant]
     Active Substance: FUROSEMIDE
     Indication: Ill-defined disorder
     Dosage: 1 DF (1 TABLET)
     Route: 065
     Dates: start: 20231018
  10. HYDROCORTISONE [Concomitant]
     Active Substance: HYDROCORTISONE
     Indication: Ill-defined disorder
     Dosage: UNK 1 APPLICATION
     Route: 065
     Dates: start: 20231026, end: 20231208
  11. KETOCONAZOLE [Concomitant]
     Active Substance: KETOCONAZOLE
     Indication: Ill-defined disorder
     Dosage: UNK 1 APPLICATION
     Route: 065
     Dates: start: 20230926, end: 20231010
  12. LOSARTAN [Concomitant]
     Active Substance: LOSARTAN
     Indication: Ill-defined disorder
     Dosage: 1 DF (1 TABLET)
     Route: 065
     Dates: start: 20231018
  13. METFORMIN [Concomitant]
     Active Substance: METFORMIN HYDROCHLORIDE
     Indication: Ill-defined disorder
     Dosage: 1 DF (1 TABLET)
     Route: 065
     Dates: start: 20231018
  14. MIRTAZAPINE [Concomitant]
     Active Substance: MIRTAZAPINE
     Indication: Ill-defined disorder
     Dosage: 1 DF (1 TABLET)
     Route: 065
     Dates: start: 20231101
  15. OZEMPIC [Concomitant]
     Active Substance: SEMAGLUTIDE
     Indication: Ill-defined disorder
     Dosage: 0.5 MG
     Route: 065
     Dates: start: 20230826
  16. PREDNISOLONE [Concomitant]
     Active Substance: PREDNISOLONE
     Indication: Ill-defined disorder
     Dosage: 8 DF (8 TABLET)
     Route: 065
     Dates: start: 20231110, end: 20231117
  17. ALBUTEROL [Concomitant]
     Active Substance: ALBUTEROL
     Indication: Ill-defined disorder
     Dosage: UNK 1-2 ACTUATION
     Route: 065
     Dates: start: 20231024

REACTIONS (1)
  - Adverse drug reaction [Recovered/Resolved]

NARRATIVE: CASE EVENT DATE: 20231206
